FAERS Safety Report 9022487 (Version 1)
Quarter: 2013Q1

REPORT INFORMATION
  Report Type: Spontaneous
  Country: JP (occurrence: JP)
  Receive Date: 20130118
  Receipt Date: 20130118
  Transmission Date: 20140127
  Serious: Yes (Other)
  Sender: FDA-Public Use
  Company Number: JP-ASTELLAS-2013JP000287

PATIENT
  Age: 5 Year
  Sex: Female

DRUGS (6)
  1. PROGRAF [Suspect]
     Indication: JUVENILE IDIOPATHIC ARTHRITIS
     Route: 065
  2. PREDNISOLONE [Concomitant]
     Indication: JUVENILE IDIOPATHIC ARTHRITIS
     Dosage: 2 MG/KG, UNKNOWN/D
     Route: 065
  3. PREDNISOLONE [Concomitant]
     Dosage: 1 MG/KG, UNKNOWN/D
     Route: 065
  4. PREDNISOLONE [Concomitant]
     Dosage: 7 MG, UNKNOWN/D
     Route: 065
  5. TOCILIZUMAB [Concomitant]
     Route: 065
  6. CYCLOSPORIN [Concomitant]
     Route: 065

REACTIONS (2)
  - Drug ineffective for unapproved indication [Unknown]
  - Juvenile idiopathic arthritis [Recovering/Resolving]
